FAERS Safety Report 22199869 (Version 2)
Quarter: 2023Q2

REPORT INFORMATION
  Report Type: Spontaneous
  Country: CN (occurrence: None)
  Receive Date: 20230412
  Receipt Date: 20230531
  Transmission Date: 20230721
  Serious: No
  Sender: FDA-Public Use
  Company Number: CN-ROCHE-3326979

PATIENT
  Age: 54 Year
  Sex: Female

DRUGS (7)
  1. GAZYVA [Suspect]
     Active Substance: OBINUTUZUMAB
     Indication: B-cell lymphoma
     Dosage: TREATMENT ON 20-APR-2022, 11-MAY-2022
     Route: 042
     Dates: start: 20220420
  2. GAZYVA [Suspect]
     Active Substance: OBINUTUZUMAB
     Dosage: MAINTENANCE THERAPY
     Route: 042
     Dates: start: 202210
  3. GAZYVA [Suspect]
     Active Substance: OBINUTUZUMAB
     Dosage: D0
     Route: 042
     Dates: start: 202301
  4. CYCLOPHOSPHAMIDE [Concomitant]
     Active Substance: CYCLOPHOSPHAMIDE
     Indication: B-cell lymphoma
     Dosage: TREATMENT ON 20-APR-2022, 11-MAY-2022, D1
     Route: 065
     Dates: start: 20220420
  5. DOXORUBICIN [Concomitant]
     Active Substance: DOXORUBICIN
     Indication: B-cell lymphoma
     Dosage: TREATMENT ON 20-APR-2022, 11-MAY-2022 D1
     Route: 065
     Dates: start: 20220420
  6. VINCRISTINE [Concomitant]
     Active Substance: VINCRISTINE
     Indication: B-cell lymphoma
     Dosage: TREATMENT ON 20-APR-2022, 11-MAY-2022, D1
     Route: 065
     Dates: start: 20220420
  7. PREDNISONE [Concomitant]
     Active Substance: PREDNISONE
     Indication: B-cell lymphoma
     Dosage: TREATMENT ON 20-APR-2022, 11-MAY-2022. D1-5
     Route: 065
     Dates: start: 20220420

REACTIONS (2)
  - Off label use [Unknown]
  - No adverse event [Unknown]
